FAERS Safety Report 8237312-X (Version None)
Quarter: 2012Q1

REPORT INFORMATION
  Report Type: 
  Country: None (occurrence: None)
  Receive Date: 20120327
  Receipt Date: 20120321
  Transmission Date: 20120608
  Serious: Yes (Life-Threatening)
  Sender: FDA-Public Use
  Company Number: JP-CELGENEUS-087-21880-11090930

PATIENT
  Sex: Female

DRUGS (4)
  1. REVLIMID [Suspect]
     Indication: MULTIPLE MYELOMA
     Route: 048
     Dates: start: 20110811, end: 20110812
  2. REVLIMID [Suspect]
     Route: 048
     Dates: start: 20110814, end: 20110820
  3. DEXAMETHASONE SODIUM PHOSPHATE [Suspect]
     Indication: MULTIPLE MYELOMA
     Route: 065
     Dates: start: 20110812, end: 20110812
  4. DEXAMETHASONE SODIUM PHOSPHATE [Suspect]
     Route: 065
     Dates: start: 20110819, end: 20110819

REACTIONS (1)
  - ALTERED STATE OF CONSCIOUSNESS [None]
